FAERS Safety Report 11922828 (Version 2)
Quarter: 2016Q2

REPORT INFORMATION
  Report Type: Spontaneous
  Country: BR (occurrence: BR)
  Receive Date: 20160116
  Receipt Date: 20160420
  Transmission Date: 20160815
  Serious: Yes (Other)
  Sender: FDA-Public Use
  Company Number: BR-AMGEN-BRACT2012078787

PATIENT
  Age: 76 Year
  Sex: Male
  Weight: 68 kg

DRUGS (25)
  1. TYLEX                              /00547501/ [Concomitant]
     Indication: PAIN
     Dosage: WHEN FEEL PAIN
     Dates: start: 201103
  2. ENBREL [Suspect]
     Active Substance: ETANERCEPT
     Indication: ANKYLOSING SPONDYLITIS
     Dosage: 50 MG, 1X/WEEK
     Route: 065
     Dates: start: 20110809
  3. ISONIAZIDE [Concomitant]
     Active Substance: ISONIAZID
     Dosage: 3 TABLETS OF 100 MG DAILY
     Dates: start: 201103
  4. SIMVASTATIN. [Concomitant]
     Active Substance: SIMVASTATIN
     Dosage: 1 TABLET OF 20 MG, 1X/DAY
     Dates: start: 2008
  5. ATENOLOL. [Concomitant]
     Active Substance: ATENOLOL
     Dosage: UNK
  6. ALLOPURINOL. [Concomitant]
     Active Substance: ALLOPURINOL
  7. COLCHICINE. [Concomitant]
     Active Substance: COLCHICINE
     Dosage: UNK
  8. TRAMOL                             /00020001/ [Concomitant]
     Dosage: 50 MG, 1X/DAY
     Dates: start: 2012
  9. OMEPRAZOLE. [Concomitant]
     Active Substance: OMEPRAZOLE
     Dosage: 1 TABLET OF 20 MG, 1X/DAY
     Dates: start: 201106
  10. ALLOPURINOL. [Concomitant]
     Active Substance: ALLOPURINOL
     Dosage: UNK
     Dates: start: 2008
  11. LOSARTAN. [Concomitant]
     Active Substance: LOSARTAN
     Dosage: 1 TABLET OF 50 MG, 1X/DAY
     Dates: start: 2006
  12. AMLODIPINE [Concomitant]
     Active Substance: AMLODIPINE BESYLATE
     Dosage: 1 TABLET OF 5 MG DAILY
     Dates: start: 2008
  13. TRAMOL                             /00020001/ [Concomitant]
     Dosage: 50 MG, 1X/DAY
  14. TYLEX                              /00020001/ [Concomitant]
     Indication: PAIN
     Dosage: WHEN FEEL PAIN
     Dates: start: 2012
  15. ENBREL [Suspect]
     Active Substance: ETANERCEPT
     Dosage: 50 MG, 1X/WEEK
     Route: 058
     Dates: start: 20110817
  16. AMIODARONE [Concomitant]
     Active Substance: AMIODARONE
     Dosage: A HALF OF A TABLET OF 200 MG FROM MONDAY TO FRIDAY
     Dates: start: 201010
  17. AAS [Concomitant]
     Active Substance: ASPIRIN
     Dosage: 1 TABLET OF 100 MG DAILY
     Dates: start: 2006
  18. OMEPRAZOLE. [Concomitant]
     Active Substance: OMEPRAZOLE
     Dosage: 1 TABLET OF 20 MG, 1X/DAY
     Dates: start: 2007
  19. ATENOLOL. [Concomitant]
     Active Substance: ATENOLOL
     Dosage: UNK
     Dates: start: 2013
  20. ENBREL [Suspect]
     Active Substance: ETANERCEPT
     Dosage: 50 MG, 1X/WEEK
     Route: 058
     Dates: start: 201207
  21. ENBREL [Suspect]
     Active Substance: ETANERCEPT
     Dosage: UNK
     Route: 065
  22. HYDROCHLOROTHIAZIDE. [Concomitant]
     Active Substance: HYDROCHLOROTHIAZIDE
     Dosage: 1 TABLET OF 25 MG DAILY
     Dates: start: 2008, end: 2014
  23. TYLEX                              /00547501/ [Concomitant]
     Indication: PAIN
     Dosage: WHEN FEEL PAIN
     Dates: start: 201103
  24. TRAMOL                             /00599202/ [Concomitant]
     Dosage: 50 MG, 1X/DAY
  25. COLCHICINE. [Concomitant]
     Active Substance: COLCHICINE
     Dosage: UNK
     Dates: start: 2015

REACTIONS (23)
  - Joint effusion [Recovered/Resolved]
  - Choking [Not Recovered/Not Resolved]
  - Pain [Not Recovered/Not Resolved]
  - Pain in extremity [Not Recovered/Not Resolved]
  - Formication [Not Recovered/Not Resolved]
  - Rhinorrhoea [Not Recovered/Not Resolved]
  - Oedema [Not Recovered/Not Resolved]
  - Abnormal loss of weight [Recovered/Resolved]
  - Arthralgia [Recovered/Resolved]
  - Throat tightness [Not Recovered/Not Resolved]
  - Hyperthyroidism [Not Recovered/Not Resolved]
  - Oedema peripheral [Not Recovered/Not Resolved]
  - Tinnitus [Not Recovered/Not Resolved]
  - Bone pain [Not Recovered/Not Resolved]
  - Erythema [Recovered/Resolved]
  - Parosmia [Recovered/Resolved]
  - Pigmentation disorder [Not Recovered/Not Resolved]
  - Sciatica [Not Recovered/Not Resolved]
  - Mobility decreased [Not Recovered/Not Resolved]
  - Muscle spasms [Not Recovered/Not Resolved]
  - Dry mouth [Not Recovered/Not Resolved]
  - Constipation [Not Recovered/Not Resolved]
  - Dysphagia [Not Recovered/Not Resolved]

NARRATIVE: CASE EVENT DATE: 2011
